FAERS Safety Report 19080507 (Version 1)
Quarter: 2021Q2

REPORT INFORMATION
  Report Type: Other
  Country: FR (occurrence: FR)
  Receive Date: 20210401
  Receipt Date: 20210401
  Transmission Date: 20210717
  Serious: Yes (Hospitalization, Other)
  Sender: FDA-Public Use
  Company Number: FR-APOTEX-2021AP008056

PATIENT
  Age: 75 Year
  Sex: Female

DRUGS (9)
  1. THERALENE [Suspect]
     Active Substance: TRIMEPRAZINE
     Indication: BIPOLAR I DISORDER
     Dosage: 5 GTT DROPS, QD
     Route: 048
     Dates: end: 202101
  2. IMOVANE [Suspect]
     Active Substance: ZOPICLONE
     Indication: BIPOLAR I DISORDER
     Dosage: 1 DOSAGE FORM, QD
     Route: 048
     Dates: end: 202101
  3. TERCIAN [CYAMEMAZINE] [Suspect]
     Active Substance: CYAMEMAZINE
     Indication: BIPOLAR I DISORDER
     Dosage: 1 DOSAGE FORM, QD
     Route: 048
  4. LYSANXIA [Suspect]
     Active Substance: PRAZEPAM
     Indication: BIPOLAR I DISORDER
     Dosage: 3 DOSAGE FORM, QD
     Route: 048
     Dates: end: 202101
  5. MIANSERIN HYDROCHLORIDE [Suspect]
     Active Substance: MIANSERIN HYDROCHLORIDE
     Indication: BIPOLAR I DISORDER
     Dosage: 30 MILLIGRAM, QD
     Route: 048
     Dates: end: 202101
  6. XEROQUEL [Suspect]
     Active Substance: QUETIAPINE FUMARATE
     Indication: BIPOLAR I DISORDER
     Dosage: UNK
     Route: 048
     Dates: end: 202101
  7. LEXOMIL [Suspect]
     Active Substance: BROMAZEPAM
     Indication: BIPOLAR I DISORDER
     Dosage: 0.5 DOSAGE FORM, QD
     Route: 048
     Dates: end: 202101
  8. DEROXAT [Suspect]
     Active Substance: PAROXETINE HYDROCHLORIDE
     Indication: BIPOLAR I DISORDER
     Dosage: 2 DOSAGE FORM, QD
     Route: 048
  9. ATARAX [Suspect]
     Active Substance: HYDROXYZINE HYDROCHLORIDE
     Indication: BIPOLAR I DISORDER
     Dosage: UNK
     Route: 048
     Dates: end: 202101

REACTIONS (2)
  - Acute respiratory failure [Recovering/Resolving]
  - Respiratory acidosis [Recovering/Resolving]

NARRATIVE: CASE EVENT DATE: 20210116
